FAERS Safety Report 9617794 (Version 3)
Quarter: 2014Q1

REPORT INFORMATION
  Report Type: Spontaneous
  Country: US (occurrence: US)
  Receive Date: 20131011
  Receipt Date: 20140319
  Transmission Date: 20141002
  Serious: Yes (Hospitalization)
  Sender: FDA-Public Use
  Company Number: US-B.I. PHARMACEUTICALS,INC./RIDGEFIELD-2013-BI-31182BP

PATIENT
  Sex: Male
  Weight: 85.73 kg

DRUGS (20)
  1. PRADAXA [Suspect]
     Indication: PRODUCT USED FOR UNKNOWN INDICATION
     Dosage: 150 MG
     Route: 065
     Dates: start: 20110923, end: 20111021
  2. PLAVIX [Suspect]
     Indication: PRODUCT USED FOR UNKNOWN INDICATION
     Dosage: 75 MG
     Route: 048
  3. ASPIRIN [Suspect]
     Indication: PRODUCT USED FOR UNKNOWN INDICATION
     Dosage: 81 MG
     Route: 048
  4. ATENOLOL [Concomitant]
     Dosage: 200 MG
     Route: 048
     Dates: start: 2005
  5. LASIX [Concomitant]
     Dosage: 20 MG
     Route: 048
  6. MULTIVITAMIN [Concomitant]
     Route: 048
  7. K-DUR [Concomitant]
     Dosage: 20 MEQ
     Route: 048
  8. ZOCOR [Concomitant]
     Dosage: 80 MG
     Route: 048
     Dates: start: 2008
  9. ATIVAN [Concomitant]
     Route: 048
     Dates: start: 2009
  10. FOLIC ACID [Concomitant]
     Dosage: 400 MCG
     Route: 048
  11. PEPCID [Concomitant]
     Dosage: 40 MG
     Route: 048
     Dates: start: 2000
  12. SENNA CONC [Concomitant]
     Dosage: 25.8 MG
     Route: 048
  13. NITROLINGUAL SPRAY [Concomitant]
     Route: 048
  14. JANUMET [Concomitant]
     Route: 048
     Dates: start: 2005
  15. CARTIA XT [Concomitant]
     Dosage: 120 MG
     Route: 048
  16. IMDUR [Concomitant]
     Dosage: 120 MG
     Route: 048
     Dates: start: 1996
  17. PROTONIX [Concomitant]
     Dosage: 40 MG
     Route: 048
  18. KLOR-CON M20 TAB [Concomitant]
     Route: 065
     Dates: start: 2005
  19. METOPROLOL [Concomitant]
     Route: 065
  20. ASPIRIN [Concomitant]
     Route: 065

REACTIONS (3)
  - Gastrointestinal haemorrhage [Unknown]
  - Haemorrhagic anaemia [Unknown]
  - Iron deficiency anaemia [Unknown]
